FAERS Safety Report 11148955 (Version 1)
Quarter: 2015Q2

REPORT INFORMATION
  Report Type: Spontaneous
  Country: CH (occurrence: None)
  Receive Date: 20150527
  Receipt Date: 20150527
  Transmission Date: 20150821
  Serious: Yes (Hospitalization, Other)
  Sender: FDA-Public Use
  Company Number: 2015COV00107

PATIENT
  Age: 81 Year
  Sex: Female

DRUGS (15)
  1. PLAQUENIL [Suspect]
     Active Substance: HYDROXYCHLOROQUINE SULFATE
     Indication: SYSTEMIC LUPUS ERYTHEMATOSUS
     Route: 048
     Dates: end: 201504
  2. CIPROXIN (CIPROFLOXACIN HYDROCHLORIDE) (FILM-COATED TABLET) (CIPROFLOXACIN HYDROCHLORIDE) [Suspect]
     Active Substance: CIPROFLOXACIN
     Indication: DEVICE RELATED INFECTION
     Route: 048
     Dates: start: 20150405, end: 20150409
  3. DOSPIR [Suspect]
     Active Substance: ALBUTEROL SULFATE\IPRATROPIUM BROMIDE
     Indication: BRONCHITIS CHRONIC
     Dates: end: 20150409
  4. PANTOZOL [Concomitant]
     Active Substance: PANTOPRAZOLE SODIUM
  5. RASILEZ [Concomitant]
     Active Substance: ALISKIREN
  6. OXYCONTIN [Concomitant]
     Active Substance: OXYCODONE HYDROCHLORIDE
  7. TRITTICO (TRAZODONE HYDROCHLORIDE) [Suspect]
     Active Substance: TRAZODONE HYDROCHLORIDE
     Indication: PRODUCT USED FOR UNKNOWN INDICATION
     Route: 048
     Dates: end: 20150409
  8. RIMACTAN (RIFAMPICIN) [Concomitant]
  9. DAFALGAN (PARACETAMOL) [Concomitant]
  10. LASIX [Suspect]
     Active Substance: FUROSEMIDE
     Indication: HYPERTENSION
     Route: 048
     Dates: end: 20150409
  11. SEROQUEL [Suspect]
     Active Substance: QUETIAPINE FUMARATE
     Indication: PRODUCT USED FOR UNKNOWN INDICATION
     Route: 048
     Dates: end: 20150409
  12. MOVICOL [Suspect]
     Active Substance: POLYETHYLENE GLYCOL 3350\POTASSIUM CHLORIDE\SODIUM BICARBONATE\SODIUM CHLORIDE
     Indication: PRODUCT USED FOR UNKNOWN INDICATION
     Route: 048
     Dates: end: 20150409
  13. BELOC ZOK (METOPROLOL SUCCINATE) [Suspect]
     Active Substance: METOPROLOL SUCCINATE
     Indication: HYPERTENSION
     Route: 048
     Dates: end: 201504
  14. FLOXAPEN (FLUCLOXACILLIN SODIUM) [Concomitant]
  15. FRAGMIN (DALTEPARIN SODIUM) [Concomitant]

REACTIONS (7)
  - Hypomagnesaemia [None]
  - Long QT syndrome [None]
  - Hypokalaemia [None]
  - Syncope [None]
  - Drug interaction [None]
  - Torsade de pointes [None]
  - Bradycardia [None]

NARRATIVE: CASE EVENT DATE: 20150407
